FAERS Safety Report 20701846 (Version 1)
Quarter: 2022Q2

REPORT INFORMATION
  Report Type: Spontaneous
  Country: US (occurrence: None)
  Receive Date: 20220412
  Receipt Date: 20220412
  Transmission Date: 20220721
  Serious: Yes (Hospitalization)
  Sender: FDA-Public Use
  Company Number: None

PATIENT
  Age: 77 Year
  Sex: Female

DRUGS (1)
  1. DIMETHYL FUMARATE [Suspect]
     Active Substance: DIMETHYL FUMARATE
     Dosage: 240 MG BID ORAL
     Route: 048
     Dates: start: 2021

REACTIONS (3)
  - Dyspnoea [None]
  - Therapy interrupted [None]
  - Product availability issue [None]

NARRATIVE: CASE EVENT DATE: 20220329
